FAERS Safety Report 8090814-1 (Version None)
Quarter: 2012Q1

REPORT INFORMATION
  Report Type: 
  Country: None (occurrence: None)
  Receive Date: 20120125
  Receipt Date: 20120109
  Transmission Date: 20120608
  Serious: Yes (Hospitalization)
  Sender: FDA-Public Use
  Company Number: 2012-0124

PATIENT
  Age: 52 Year
  Sex: Female

DRUGS (1)
  1. SOMATULINE DEPOT [Suspect]
     Indication: PRODUCT USED FOR UNKNOWN INDICATION
     Dosage: 90 MG (90 MG, 1 IN 28 D), INTRAMUSCULAR
     Route: 030

REACTIONS (1)
  - HEPATIC EMBOLISATION [None]
